FAERS Safety Report 25458001 (Version 1)
Quarter: 2025Q2

REPORT INFORMATION
  Report Type: Spontaneous
  Country: PL (occurrence: PL)
  Receive Date: 20250620
  Receipt Date: 20250620
  Transmission Date: 20250716
  Serious: Yes (Hospitalization)
  Sender: TEVA
  Company Number: PL-002147023-NVSC2025PL085237

PATIENT
  Age: 69 Year
  Sex: Male

DRUGS (9)
  1. CLOPIDOGREL [Suspect]
     Active Substance: CLOPIDOGREL BISULFATE
     Indication: Product used for unknown indication
     Dosage: QD
     Route: 065
  2. RIVAROXABAN [Concomitant]
     Active Substance: RIVAROXABAN
     Indication: Product used for unknown indication
     Dosage: QD
     Route: 065
  3. TORSEMIDE [Concomitant]
     Active Substance: TORSEMIDE
     Indication: Product used for unknown indication
     Dosage: QD
     Route: 065
  4. BISOPROLOL [Suspect]
     Active Substance: BISOPROLOL
     Indication: Product used for unknown indication
     Dosage: QD
     Route: 065
  5. AMLODIPINE\PERINDOPRIL [Concomitant]
     Active Substance: AMLODIPINE\PERINDOPRIL
     Indication: Product used for unknown indication
     Route: 065
  6. EMPAGLIFLOZIN [Concomitant]
     Active Substance: EMPAGLIFLOZIN
     Indication: Product used for unknown indication
     Dosage: QD
     Route: 065
  7. EZETIMIBE\ROSUVASTATIN [Suspect]
     Active Substance: EZETIMIBE\ROSUVASTATIN
     Indication: Product used for unknown indication
     Route: 065
  8. PANTOPRAZOLE [Suspect]
     Active Substance: PANTOPRAZOLE
     Indication: Product used for unknown indication
     Dosage: QD
     Route: 065
  9. LEQVIO [Suspect]
     Active Substance: INCLISIRAN SODIUM
     Indication: Product used for unknown indication
     Dosage: QD
     Route: 058
     Dates: start: 202311

REACTIONS (6)
  - Leriche syndrome [Unknown]
  - Peripheral arterial occlusive disease [Unknown]
  - Peripheral artery occlusion [Unknown]
  - Peripheral ischaemia [Unknown]
  - Splenic infarction [Unknown]
  - Renal infarct [Unknown]

NARRATIVE: CASE EVENT DATE: 20240731
